FAERS Safety Report 14200279 (Version 1)
Quarter: 2017Q4

REPORT INFORMATION
  Report Type: Spontaneous
  Country: BE (occurrence: BE)
  Receive Date: 20171117
  Receipt Date: 20171117
  Transmission Date: 20180321
  Serious: Yes (Other)
  Sender: FDA-Public Use
  Company Number: BE-PFIZER INC-2017492007

PATIENT
  Age: 66 Year

DRUGS (1)
  1. PANTOMED (PANTOPRAZOLE SODIUM) [Suspect]
     Active Substance: PANTOPRAZOLE SODIUM
     Dosage: 20 MG, UNK
     Route: 065
     Dates: start: 201706

REACTIONS (26)
  - Dizziness [Unknown]
  - Heart rate increased [Unknown]
  - Asthenia [Unknown]
  - Fatigue [Unknown]
  - Loss of consciousness [Unknown]
  - Angina pectoris [Unknown]
  - Vision blurred [Unknown]
  - Dry mouth [Unknown]
  - Peripheral coldness [Unknown]
  - Photophobia [Unknown]
  - Sleep disorder [Unknown]
  - Disorientation [Unknown]
  - Dysphagia [Unknown]
  - Hyperhidrosis [Unknown]
  - Pruritus [Unknown]
  - Confusional state [Unknown]
  - Malaise [Unknown]
  - Pharyngeal oedema [Unknown]
  - Urticaria [Unknown]
  - Dyspnoea [Unknown]
  - Depression [Unknown]
  - Hallucination [Unknown]
  - Paraesthesia [Unknown]
  - Burning sensation [Unknown]
  - Hypersensitivity [Unknown]
  - Flatulence [Unknown]
